FAERS Safety Report 9239058 (Version 2)
Quarter: 2013Q2

REPORT INFORMATION
  Report Type: Spontaneous
  Country: US (occurrence: US)
  Receive Date: 20130418
  Receipt Date: 20130509
  Transmission Date: 20140414
  Serious: Yes (Other)
  Sender: FDA-Public Use
  Company Number: US-PFIZER INC-2013112055

PATIENT
  Age: 71 Year
  Sex: Female
  Weight: 59.86 kg

DRUGS (6)
  1. ENBREL [Suspect]
     Indication: RHEUMATOID ARTHRITIS
     Dosage: UNK
  2. XELJANZ [Suspect]
     Indication: RHEUMATOID ARTHRITIS
     Dosage: 5 MG, 2X/DAY
     Dates: start: 2013
  3. XELJANZ [Suspect]
     Dosage: 5 MG, 2X/DAY
  4. REMICADE [Suspect]
     Indication: RHEUMATOID ARTHRITIS
     Dosage: UNK, EVERY EIGHT WEEKS
     Route: 042
     Dates: start: 2005, end: 2013
  5. PLAQUENIL [Suspect]
     Indication: RHEUMATOID ARTHRITIS
     Dosage: 200 MG, BID
  6. PREDNISONE [Concomitant]
     Indication: RHEUMATOID ARTHRITIS
     Dosage: UNK UNK, BID

REACTIONS (13)
  - Asthenia [Unknown]
  - Chills [Unknown]
  - Dysphagia [Unknown]
  - Influenza like illness [Unknown]
  - Local swelling [Unknown]
  - Tremor [Unknown]
  - Vomiting [Unknown]
  - Infection [Unknown]
  - Mumps [Unknown]
  - Drug effect decreased [Unknown]
  - Joint swelling [Unknown]
  - Hypersensitivity [Recovered/Resolved]
  - Drug hypersensitivity [Unknown]
